FAERS Safety Report 5064743-1 (Version None)
Quarter: 2006Q3

REPORT INFORMATION
  Report Type: 
  Country: None (occurrence: None)
  Receive Date: 20060725
  Receipt Date: 20060713
  Transmission Date: 20061208
  Serious: No
  Sender: FDA-Public Use
  Company Number: CGS00394A

PATIENT
  Age: 54 Year
  Sex: Female
  Weight: 58.8769 kg

DRUGS (2)
  1. IMITREX [Suspect]
     Indication: MIGRAINE
     Dosage: 6 MG / SINGLE DOSE / SUBCUTANEOUS
     Route: 058
     Dates: start: 19881129, end: 19881129
  2. NADOLOL [Concomitant]

REACTIONS (6)
  - DRUG DISPENSING ERROR [None]
  - FEELING HOT [None]
  - INCORRECT DOSE ADMINISTERED [None]
  - INJECTION SITE IRRITATION [None]
  - PARAESTHESIA [None]
  - SOMNOLENCE [None]
